FAERS Safety Report 7553858-1 (Version None)
Quarter: 2011Q2

REPORT INFORMATION
  Report Type: 
  Country: None (occurrence: None)
  Receive Date: 20110617
  Receipt Date: 20110615
  Transmission Date: 20111010
  Serious: Yes (Other)
  Sender: FDA-Public Use
  Company Number: US-BRISTOL-MYERS SQUIBB COMPANY-15705049

PATIENT
  Age: 1 Month
  Sex: Female

DRUGS (3)
  1. ABILIFY [Suspect]
     Indication: OBSESSIVE-COMPULSIVE DISORDER
     Dosage: THE BABY'S MOTHER WAS RECEIVING ARIPIPRAZOLE 2.5 MG DAILY AND WAS BREAST FEEDING THE BABY.
     Route: 064
     Dates: start: 20100630
  2. LEXAPRO [Suspect]
     Dosage: THE BABY'S MOTHER WAS ON THERAPY WITH ESCITALOPRAM OXALATE AND WAS BREAST FEEDING THE BABY.
     Route: 064
     Dates: start: 20050606
  3. ABILIFY [Suspect]
     Indication: BIPOLAR I DISORDER
     Dosage: THE BABY'S MOTHER WAS RECEIVING ARIPIPRAZOLE 2.5 MG DAILY AND WAS BREAST FEEDING THE BABY.
     Route: 064
     Dates: start: 20100630

REACTIONS (3)
  - MENSTRUAL DISORDER [None]
  - FAILURE TO THRIVE [None]
  - GASTROOESOPHAGEAL REFLUX DISEASE [None]
